FAERS Safety Report 7603739-X (Version None)
Quarter: 2011Q3

REPORT INFORMATION
  Report Type: 
  Country: None (occurrence: None)
  Receive Date: 20110712
  Receipt Date: 20110616
  Transmission Date: 20111222
  Serious: Yes (Hospitalization)
  Sender: FDA-Public Use
  Company Number: US-GLAXOSMITHKLINE-A0806149A

PATIENT
  Age: 50 Year
  Sex: Male

DRUGS (13)
  1. AVANDIA [Suspect]
     Indication: TYPE 2 DIABETES MELLITUS
     Dosage: 4MG TWICE PER DAY
     Route: 048
     Dates: start: 20060101
  2. ACTOS [Concomitant]
     Dates: end: 20061201
  3. AMARYL [Concomitant]
  4. GABAPENTIN [Concomitant]
  5. NEXIUM [Concomitant]
  6. CYMBALTA [Concomitant]
  7. LANTUS [Concomitant]
  8. LIPITOR [Concomitant]
  9. ALBUTEROL SULFATE AUTOHALER [Concomitant]
  10. CYCLOBENAZPRINE [Concomitant]
  11. SINGULAIR [Concomitant]
  12. SPIRIVA [Concomitant]
  13. LISINOPRIL [Concomitant]

REACTIONS (2)
  - CARDIAC FAILURE CONGESTIVE [None]
  - DEPRESSION [None]
